FAERS Safety Report 14708487 (Version 4)
Quarter: 2019Q1

REPORT INFORMATION
  Report Type: Spontaneous
  Country: US (occurrence: US)
  Receive Date: 20180403
  Receipt Date: 20190104
  Transmission Date: 20190417
  Serious: Yes (Hospitalization, Other)
  Sender: FDA-Public Use
  Company Number: US-ASTRAZENECA-2018SE39812

PATIENT
  Age: 56 Year
  Sex: Female
  Weight: 204.1 kg

DRUGS (96)
  1. NEXIUM [Suspect]
     Active Substance: ESOMEPRAZOLE MAGNESIUM
     Indication: GASTROOESOPHAGEAL REFLUX DISEASE
     Route: 048
     Dates: start: 20120107
  2. NEXIUM [Suspect]
     Active Substance: ESOMEPRAZOLE MAGNESIUM
     Indication: GASTROOESOPHAGEAL REFLUX DISEASE
     Route: 048
     Dates: start: 20150203
  3. SPIRIVA [Concomitant]
     Active Substance: TIOTROPIUM BROMIDE MONOHYDRATE
     Indication: CHRONIC OBSTRUCTIVE PULMONARY DISEASE
     Dosage: INHALE 1 CAPSULE BY INHALATION ROUTE ONCE DAILY
     Dates: start: 20130328
  4. FLUTICASONE. [Concomitant]
     Active Substance: FLUTICASONE
     Indication: CHRONIC OBSTRUCTIVE PULMONARY DISEASE
     Dosage: FLONASE-INJECT TWO SPRAYS IN EACH NOSTRIL ONCE DAILY
     Dates: start: 20030113
  5. XOPENEX [Concomitant]
     Active Substance: LEVALBUTEROL HYDROCHLORIDE
     Indication: CHRONIC OBSTRUCTIVE PULMONARY DISEASE
     Dosage: HFA INHALER-INHALE 2 PUFFS (90 MCG) BY INHALATION ROUTE EVERY 4-6 HOURS FOR 30 DAY
     Dates: start: 20130605
  6. AMOX-CLAV [Concomitant]
     Active Substance: AMOXICILLIN\CLAVULANATE POTASSIUM
     Indication: INFECTION
     Dosage: AUGMENTIN-TAKE ONE TABLET TWICE A DAY WITH FOOD
     Route: 048
     Dates: start: 20021127
  7. RANITIDINE. [Concomitant]
     Active Substance: RANITIDINE
     Indication: ABDOMINAL DISCOMFORT
     Route: 048
     Dates: start: 20021002
  8. METRONIDAZOLE. [Concomitant]
     Active Substance: METRONIDAZOLE
     Indication: INFECTION
     Route: 048
     Dates: start: 20031230
  9. LEVOFLOXACIN. [Concomitant]
     Active Substance: LEVOFLOXACIN
     Indication: INFECTION
     Route: 048
     Dates: start: 20121130
  10. PRILOSEC [Suspect]
     Active Substance: OMEPRAZOLE MAGNESIUM
     Indication: GASTROOESOPHAGEAL REFLUX DISEASE
     Route: 048
     Dates: start: 2002, end: 2003
  11. PRILOSEC [Suspect]
     Active Substance: OMEPRAZOLE MAGNESIUM
     Indication: GASTROOESOPHAGEAL REFLUX DISEASE
     Route: 048
     Dates: start: 20021113
  12. PROMETHAZINE [Concomitant]
     Active Substance: PROMETHAZINE\PROMETHAZINE HYDROCHLORIDE
     Indication: NAUSEA
     Dates: start: 2002, end: 2017
  13. FLUTICASONE. [Concomitant]
     Active Substance: FLUTICASONE
     Indication: CHRONIC OBSTRUCTIVE PULMONARY DISEASE
     Dates: start: 2013, end: 2017
  14. ONDANSETRON [Concomitant]
     Active Substance: ONDANSETRON
     Indication: NAUSEA
     Route: 048
     Dates: start: 20130605
  15. POTASSIUM [Concomitant]
     Active Substance: POTASSIUM
     Indication: GASTROINTESTINAL DISORDER
     Dosage: KLOR-CON-TAKE ONE TABLET BY MOUTH ONCE DAILY
     Route: 048
     Dates: start: 20101123
  16. AMOX-CLAV [Concomitant]
     Active Substance: AMOXICILLIN\CLAVULANATE POTASSIUM
     Indication: INFECTION
     Dosage: 2003,2012,2013,2015,2016,2017
  17. SKELAXIN [Concomitant]
     Active Substance: METAXALONE
     Dosage: TAKE ONE TABLET OR 2 TABLETS 3 TIMES DAILY
     Route: 048
     Dates: start: 20021003
  18. ATENOLOL. [Concomitant]
     Active Substance: ATENOLOL
     Route: 048
     Dates: start: 20021003
  19. BACLOFEN. [Concomitant]
     Active Substance: BACLOFEN
     Indication: MUSCLE SPASMS
     Route: 048
     Dates: start: 20021015
  20. BEXTRA [Concomitant]
     Active Substance: VALDECOXIB
     Indication: PAIN
     Route: 048
     Dates: start: 20021015
  21. VERAPAMIL [Concomitant]
     Active Substance: VERAPAMIL HYDROCHLORIDE
     Dosage: TAKE ONE TABLET TWICE A DAY FOR HEADACHE PREVENTION
     Route: 048
     Dates: start: 20021209
  22. GABAPENTIN. [Concomitant]
     Active Substance: GABAPENTIN
     Route: 048
     Dates: start: 20120110
  23. NEXIUM [Suspect]
     Active Substance: ESOMEPRAZOLE MAGNESIUM
     Indication: GASTROOESOPHAGEAL REFLUX DISEASE
     Route: 048
     Dates: start: 2002, end: 2017
  24. PRILOSEC [Suspect]
     Active Substance: OMEPRAZOLE MAGNESIUM
     Indication: GASTROOESOPHAGEAL REFLUX DISEASE
     Route: 048
     Dates: start: 2002, end: 2017
  25. PROMETHAZINE [Concomitant]
     Active Substance: PROMETHAZINE\PROMETHAZINE HYDROCHLORIDE
     Indication: MULTIPLE ALLERGIES
     Dates: start: 2002, end: 2017
  26. TOPIRAMATE. [Concomitant]
     Active Substance: TOPIRAMATE
     Indication: MIGRAINE
     Dosage: TOPAMAX-TAKE TWO TABLETS TWICE A DAY
     Route: 048
     Dates: start: 20021015
  27. TRAZODONE [Concomitant]
     Active Substance: TRAZODONE HYDROCHLORIDE
     Indication: DEPRESSION
     Dates: start: 2015, end: 2017
  28. LEVOFLOXACIN. [Concomitant]
     Active Substance: LEVOFLOXACIN
     Indication: INFECTION
     Dates: start: 2012, end: 2017
  29. ACCUPRIL [Concomitant]
     Active Substance: QUINAPRIL HYDROCHLORIDE
     Indication: BLOOD PRESSURE ABNORMAL
     Route: 048
     Dates: start: 20021015
  30. IMITREX [Concomitant]
     Active Substance: SUMATRIPTAN SUCCINATE
     Dosage: TAKE ONE TABLET AT ONSET OF HEADACHE MAY REPEAT IN 1 HOUR IF NEEDED
     Route: 048
     Dates: start: 20021209
  31. CELEBREX [Concomitant]
     Active Substance: CELECOXIB
     Route: 048
     Dates: start: 20030319
  32. ENDOCET [Concomitant]
     Active Substance: ACETAMINOPHEN\OXYCODONE HYDROCHLORIDE
     Indication: HEADACHE
     Dosage: 5-325MG-TAKE ONE TABLET EVERY 6 HOURS AS NEEDED
     Route: 048
     Dates: start: 20030923
  33. CLINDAMYCIN. [Concomitant]
     Active Substance: CLINDAMYCIN
     Dosage: TAKE 1 CAPSULE BY ORAL ROUTE 4 TIMES A DAY FOR 7 DAYS
     Route: 048
     Dates: start: 20131101
  34. NEXIUM [Suspect]
     Active Substance: ESOMEPRAZOLE MAGNESIUM
     Indication: GASTROOESOPHAGEAL REFLUX DISEASE
     Route: 048
     Dates: start: 20130115
  35. NYSTATIN. [Concomitant]
     Active Substance: NYSTATIN
     Indication: INFECTION
     Dosage: CRM 100MU PERR 30GM-APPL^( TO THE AFFECTED AREA(S) BY TOPICAL ROUTE 3 TIMES PER DAY FOR 30 DAYS
     Dates: start: 20140218
  36. PROMETHAZINE [Concomitant]
     Active Substance: PROMETHAZINE\PROMETHAZINE HYDROCHLORIDE
     Indication: NAUSEA
     Route: 048
     Dates: start: 20021026
  37. TRAMADOL. [Concomitant]
     Active Substance: TRAMADOL
     Indication: PAIN
     Dates: start: 2009, end: 2017
  38. TRAMADOL. [Concomitant]
     Active Substance: TRAMADOL
     Indication: PAIN
     Route: 048
     Dates: start: 20091204
  39. CYCLOBENZAPRINE. [Concomitant]
     Active Substance: CYCLOBENZAPRINE
     Indication: MUSCLE RELAXANT THERAPY
     Dates: start: 2009, end: 2017
  40. METOLAZONE. [Concomitant]
     Active Substance: METOLAZONE
     Indication: BLOOD PRESSURE ABNORMAL
     Dosage: TAKE 1 TABLET (5 MG) BY ORAL ROUTE ONCE DAILY FOR 4 DAYS
     Route: 048
     Dates: start: 20130709
  41. POTASSIUM [Concomitant]
     Active Substance: POTASSIUM
     Indication: GASTROINTESTINAL DISORDER
     Dates: start: 2015, end: 2017
  42. HYDROCHLOROTHIAZIDE. [Concomitant]
     Active Substance: HYDROCHLOROTHIAZIDE
     Route: 048
     Dates: start: 20021015
  43. HYOMAX [Concomitant]
     Active Substance: HYOSCYAMINE SULFATE
     Dosage: TAKE ONE TABLET 4 TIMES DAILY BEFORE MEALS AND AT BEDTIME
     Route: 060
     Dates: start: 20021113
  44. RELPAX [Concomitant]
     Active Substance: ELETRIPTAN HYDROBROMIDE
     Dosage: TAKE ONE TABLET AT ONSET OF HEADACHE AS DIRECTED BY DOCTOR
     Route: 048
     Dates: start: 20030430
  45. AGGRENOX [Concomitant]
     Active Substance: ASPIRIN\DIPYRIDAMOLE
     Dosage: 200-25MG-TAKE ONE CAPSULE LWLCE A DAY
     Route: 048
     Dates: start: 20120113
  46. LORATADINE. [Concomitant]
     Active Substance: LORATADINE
  47. HYDROCODONE BITARTRATE AND ACETAMINOPHEN [Concomitant]
     Active Substance: ACETAMINOPHEN\HYDROCODONE BITARTRATE
     Indication: PAIN
     Dates: start: 2002, end: 2017
  48. HYDROCODONE BITARTRATE AND ACETAMINOPHEN [Concomitant]
     Active Substance: ACETAMINOPHEN\HYDROCODONE BITARTRATE
     Indication: PAIN
     Dosage: 7.5/650-TAKE ONE TABLET EVERY 8 HOURS AS NEEDED
     Route: 048
     Dates: start: 20021003
  49. TOPIRAMATE. [Concomitant]
     Active Substance: TOPIRAMATE
     Indication: MIGRAINE
     Dates: start: 2014, end: 2017
  50. SPIRIVA [Concomitant]
     Active Substance: TIOTROPIUM BROMIDE MONOHYDRATE
     Indication: CHRONIC OBSTRUCTIVE PULMONARY DISEASE
     Dates: start: 2013, end: 2017
  51. ADVAIR HFA [Concomitant]
     Active Substance: FLUTICASONE PROPIONATE\SALMETEROL XINAFOATE
     Indication: CHRONIC OBSTRUCTIVE PULMONARY DISEASE
     Dosage: ADVAIR DISKU 250/50-USE TWICE A DAY
     Dates: start: 20131108
  52. XOPENEX [Concomitant]
     Active Substance: LEVALBUTEROL HYDROCHLORIDE
     Indication: CHRONIC OBSTRUCTIVE PULMONARY DISEASE
     Dates: start: 2013, end: 2017
  53. AMOX-CLAV [Concomitant]
     Active Substance: AMOXICILLIN\CLAVULANATE POTASSIUM
     Indication: INFECTION
     Dosage: AMOXILICLAVULANTE 5OOMG/125MG-TAKE ONE TABLET TWICE A DAY WITH FOOD
     Route: 048
     Dates: start: 20020113
  54. RANITIDINE. [Concomitant]
     Active Substance: RANITIDINE
     Indication: ABDOMINAL DISCOMFORT
     Dosage: ZANTAC-TAKE ONE TABLET TWICE A OA Y
     Route: 048
     Dates: start: 20041030
  55. VIOXX [Concomitant]
     Active Substance: ROFECOXIB
     Indication: PAIN
     Dosage: TAKE ONE TABLET ONCE DAILY WITH FOOD
     Route: 048
     Dates: start: 20021101
  56. BENZONATATE. [Concomitant]
     Active Substance: BENZONATATE
     Indication: COUGH
     Route: 048
     Dates: start: 20081020
  57. MORPHINE [Concomitant]
     Active Substance: MORPHINE
     Indication: PAIN
     Route: 048
     Dates: start: 20090501
  58. FLUCONAZOLE. [Concomitant]
     Active Substance: FLUCONAZOLE
     Dosage: TAKE ONE TABLET NOW THEN REPEAT IN 3 DAYS
     Route: 048
     Dates: start: 20110228
  59. ASPIRIN. [Concomitant]
     Active Substance: ASPIRIN
     Route: 048
     Dates: start: 20131025
  60. BUPROPION HYDROCHLORIDE. [Concomitant]
     Active Substance: BUPROPION HYDROCHLORIDE
     Route: 048
  61. NEXIUM [Suspect]
     Active Substance: ESOMEPRAZOLE MAGNESIUM
     Indication: GASTROOESOPHAGEAL REFLUX DISEASE
     Dosage: GENERIC
     Route: 048
     Dates: start: 2017
  62. ALBUTEROL. [Concomitant]
     Active Substance: ALBUTEROL
     Indication: CHRONIC OBSTRUCTIVE PULMONARY DISEASE
     Dosage: INHALE ONE PUFF EVERY 6 HOURS AS NEEDED
     Dates: start: 20121103
  63. ADVAIR HFA [Concomitant]
     Active Substance: FLUTICASONE PROPIONATE\SALMETEROL XINAFOATE
     Indication: CHRONIC OBSTRUCTIVE PULMONARY DISEASE
     Dates: start: 2013, end: 2017
  64. FUROSEMIDE. [Concomitant]
     Active Substance: FUROSEMIDE
     Indication: FLUID RETENTION
     Dates: start: 2010, end: 2017
  65. CARISOPRODOL. [Concomitant]
     Active Substance: CARISOPRODOL
     Indication: MUSCLE RELAXANT THERAPY
     Dates: start: 2002, end: 2004
  66. MELOXICAM. [Concomitant]
     Active Substance: MELOXICAM
     Indication: ARTHRITIS
     Dates: start: 2015, end: 2016
  67. LEVOFLOXACIN. [Concomitant]
     Active Substance: LEVOFLOXACIN
     Indication: INFECTION
     Route: 048
     Dates: start: 20121130
  68. BEXTRA [Concomitant]
     Active Substance: VALDECOXIB
     Indication: INFLAMMATION
     Route: 048
     Dates: start: 20021015
  69. VIOXX [Concomitant]
     Active Substance: ROFECOXIB
     Indication: INFLAMMATION
     Dosage: TAKE ONE TABLET ONCE DAILY WITH FOOD
     Route: 048
     Dates: start: 20021101
  70. CLONAZEPAM. [Concomitant]
     Active Substance: CLONAZEPAM
     Route: 048
     Dates: start: 20021113
  71. ZOLOFT [Concomitant]
     Active Substance: SERTRALINE HYDROCHLORIDE
     Route: 048
     Dates: start: 20021127
  72. CIPROFLOXACIN. [Concomitant]
     Active Substance: CIPROFLOXACIN
     Route: 048
     Dates: start: 20110817
  73. SUCRALFATE. [Concomitant]
     Active Substance: SUCRALFATE
     Dosage: TAKE ONE TABLET SY MOUTH 4 TIMES DAILY ON EMPTY STOMACH 1 HOUR
     Route: 048
     Dates: start: 20120306
  74. SYMBICORT [Concomitant]
     Active Substance: BUDESONIDE\FORMOTEROL FUMARATE DIHYDRATE
     Dosage: 160/4.5 MEG INHALER-INHALE 2 PUFFS BY INHALATION ROUTE 2 TIMES PER DAY IN THE MORNING
     Dates: start: 20140219
  75. METHADONE [Concomitant]
     Active Substance: METHADONE HYDROCHLORIDE
     Indication: PAIN
     Dates: start: 2010, end: 2017
  76. CYCLOBENZAPRINE. [Concomitant]
     Active Substance: CYCLOBENZAPRINE
     Indication: MUSCLE RELAXANT THERAPY
     Route: 048
     Dates: start: 20090331
  77. ALBUTEROL. [Concomitant]
     Active Substance: ALBUTEROL
     Indication: CHRONIC OBSTRUCTIVE PULMONARY DISEASE
     Dates: start: 2012, end: 2016
  78. FUROSEMIDE. [Concomitant]
     Active Substance: FUROSEMIDE
     Indication: FLUID RETENTION
     Dosage: TAKE ONE TABLET BY MOUTH ONCE DAILY OR TWICE A DAY AS NEEDED
     Route: 048
     Dates: start: 20110319
  79. IBUPROFEN. [Concomitant]
     Active Substance: IBUPROFEN
     Indication: PAIN
     Dates: start: 2003, end: 2013
  80. DALIRESP [Concomitant]
     Active Substance: ROFLUMILAST
     Indication: ANTIINFLAMMATORY THERAPY
     Dates: start: 2013, end: 2017
  81. DIETHYLPROPION [Concomitant]
     Active Substance: DIETHYLPROPION
     Indication: MEDICAL DIET
     Route: 048
     Dates: start: 20021015
  82. RISPERDAL [Concomitant]
     Active Substance: RISPERIDONE
     Route: 048
     Dates: start: 20030215
  83. KETOCONAZOLE. [Concomitant]
     Active Substance: KETOCONAZOLE
     Indication: RASH
     Dosage: APPLY TO AFFECTED AREA TWICE A DAY FOR FUNGAL RASH
     Dates: start: 20110228
  84. AMLODIPINE [Concomitant]
     Active Substance: AMLODIPINE BESYLATE
     Indication: BLOOD PRESSURE ABNORMAL
     Route: 048
     Dates: start: 20121222
  85. ATORVASTATIN [Concomitant]
     Active Substance: ATORVASTATIN
  86. ALPRAZOLAM. [Concomitant]
     Active Substance: ALPRAZOLAM
     Route: 048
  87. NYSTATIN. [Concomitant]
     Active Substance: NYSTATIN
     Indication: INFECTION
     Dates: start: 2014, end: 2017
  88. PROMETHAZINE [Concomitant]
     Active Substance: PROMETHAZINE\PROMETHAZINE HYDROCHLORIDE
     Indication: MULTIPLE ALLERGIES
     Route: 048
     Dates: start: 20021026
  89. METOLAZONE. [Concomitant]
     Active Substance: METOLAZONE
     Indication: BLOOD PRESSURE ABNORMAL
     Dates: start: 2013, end: 2016
  90. ONDANSETRON [Concomitant]
     Active Substance: ONDANSETRON
     Indication: NAUSEA
     Dates: start: 2013, end: 2015
  91. IBUPROFEN. [Concomitant]
     Active Substance: IBUPROFEN
     Indication: PAIN
     Route: 048
     Dates: start: 20030113
  92. CARISOPRODOL. [Concomitant]
     Active Substance: CARISOPRODOL
     Indication: MUSCLE RELAXANT THERAPY
     Route: 048
     Dates: start: 20021002
  93. MEPROZINE [Concomitant]
     Indication: HEADACHE
     Dosage: 50-25-TAKE ONE CAPSULE EVERY 4 HOURS AS NEEDED
     Route: 048
     Dates: start: 20021209
  94. TRIMOX [Concomitant]
     Active Substance: AMOXICILLIN
     Route: 048
     Dates: start: 20030113
  95. METHADONE [Concomitant]
     Active Substance: METHADONE HYDROCHLORIDE
     Indication: PAIN
     Route: 048
     Dates: start: 20101101
  96. ACETAMINOPHEN. [Concomitant]
     Active Substance: ACETAMINOPHEN
     Route: 048

REACTIONS (7)
  - Nephrogenic anaemia [Unknown]
  - Nephropathy [Unknown]
  - End stage renal disease [Not Recovered/Not Resolved]
  - Chronic kidney disease [Not Recovered/Not Resolved]
  - Acute kidney injury [Not Recovered/Not Resolved]
  - Renal impairment [Unknown]
  - Renal failure [Unknown]

NARRATIVE: CASE EVENT DATE: 2017
